FAERS Safety Report 9921899 (Version 1)
Quarter: 2014Q1

REPORT INFORMATION
  Report Type: Spontaneous
  Country: US (occurrence: None)
  Receive Date: 20140221
  Receipt Date: 20140221
  Transmission Date: 20141002
  Serious: Yes (Other)
  Sender: FDA-Public Use
  Company Number: None

PATIENT
  Age: 31 Year
  Sex: Female
  Weight: 48.08 kg

DRUGS (1)
  1. ORTHO TRI-CYCLEN LO [Suspect]
     Indication: CONTRACEPTION
     Dosage: 0.180MG NORGESTIMATE?0.025MG ETHINYL ESTRADIOL  ?1 PILL/DAY
     Route: 048
     Dates: start: 20140129, end: 20140201

REACTIONS (3)
  - Raynaud^s phenomenon [None]
  - Paraesthesia [None]
  - Hypoaesthesia [None]
